FAERS Safety Report 8278312-3 (Version None)
Quarter: 2012Q2

REPORT INFORMATION
  Report Type: 
  Country: None (occurrence: None)
  Receive Date: 20120412
  Receipt Date: 20110701
  Transmission Date: 20120825
  Serious: No
  Sender: FDA-Public Use
  Company Number: US-ASTRAZENECA-2011SE39591

PATIENT
  Age: 0 Week
  Sex: Female

DRUGS (4)
  1. DILAUDID [Suspect]
     Indication: BACK PAIN
     Route: 064
  2. ZONEGRAN [Suspect]
     Indication: CONVULSION
     Route: 064
  3. NEXIUM [Suspect]
     Route: 064
  4. TOPIRAMATE [Suspect]
     Indication: CONVULSION
     Route: 064

REACTIONS (2)
  - LOW BIRTH WEIGHT BABY [None]
  - PREMATURE BABY [None]
